FAERS Safety Report 9607067 (Version 3)
Quarter: 2013Q4

REPORT INFORMATION
  Report Type: Spontaneous
  Country: US (occurrence: US)
  Receive Date: 20131009
  Receipt Date: 20131121
  Transmission Date: 20140711
  Serious: Yes (Hospitalization)
  Sender: FDA-Public Use
  Company Number: US-BIOGENIDEC-2013BI096300

PATIENT
  Age: 35 Year
  Sex: Female
  Weight: 104 kg

DRUGS (14)
  1. TYSABRI [Suspect]
     Indication: MULTIPLE SCLEROSIS
     Route: 042
     Dates: start: 20111019, end: 20130701
  2. TYSABRI [Suspect]
     Indication: MULTIPLE SCLEROSIS
     Route: 042
     Dates: start: 20131118
  3. AMBIEN [Concomitant]
  4. ASPIRIN [Concomitant]
  5. ELAVIL [Concomitant]
  6. HYDROCHLOROTHIAZIDE [Concomitant]
  7. NAPROXEN [Concomitant]
  8. NORVASC [Concomitant]
  9. OXYBUTYNIN [Concomitant]
  10. PROAIR [Concomitant]
  11. PROTONIX [Concomitant]
  12. LYRICA [Concomitant]
  13. CENTERGY (PRESUMED CENTERGY DM) [Concomitant]
  14. LOVENOX [Concomitant]

REACTIONS (6)
  - Anxiety [Recovered/Resolved]
  - Obesity [Unknown]
  - Insomnia [Unknown]
  - Gastrooesophageal reflux disease [Unknown]
  - Multiple sclerosis relapse [Recovered/Resolved]
  - Arthralgia [Recovered/Resolved]
